FAERS Safety Report 6901503-8 (Version None)
Quarter: 2010Q3

REPORT INFORMATION
  Report Type: 
  Country: None (occurrence: None)
  Receive Date: 20100803
  Receipt Date: 20080208
  Transmission Date: 20110219
  Serious: No
  Sender: FDA-Public Use
  Company Number: US-PFIZER INC-2008013512

PATIENT
  Sex: Female

DRUGS (1)
  1. LYRICA [Suspect]
     Dates: start: 20060501

REACTIONS (4)
  - BLOOD PRESSURE DECREASED [None]
  - DYSPHEMIA [None]
  - WEIGHT DECREASED [None]
  - WEIGHT INCREASED [None]
